FAERS Safety Report 6892039-1 (Version None)
Quarter: 2010Q3

REPORT INFORMATION
  Report Type: 
  Country: None (occurrence: None)
  Receive Date: 20100731
  Receipt Date: 20080114
  Transmission Date: 20110219
  Serious: No
  Sender: FDA-Public Use
  Company Number: US-PFIZER INC-2007100320

PATIENT
  Sex: Female

DRUGS (2)
  1. NORVASC [Suspect]
  2. CADUET [Suspect]
     Dosage: 10/10 MG

REACTIONS (3)
  - FEELING ABNORMAL [None]
  - FEELING JITTERY [None]
  - PAIN [None]
